FAERS Safety Report 17473926 (Version 1)
Quarter: 2020Q1

REPORT INFORMATION
  Report Type: Spontaneous
  Country: US (occurrence: US)
  Receive Date: 20200228
  Receipt Date: 20200228
  Transmission Date: 20200409
  Serious: No
  Sender: FDA-Public Use
  Company Number: US-EVOLUS, INC.-2019EV001587

PATIENT
  Age: 52 Year
  Sex: Female
  Weight: 61.29 kg

DRUGS (1)
  1. JEUVEAU [Suspect]
     Active Substance: PRABOTULINUMTOXINA-XVFS
     Indication: PRODUCT USED FOR UNKNOWN INDICATION
     Dates: start: 20191205, end: 20191205

REACTIONS (6)
  - Headache [Unknown]
  - Feeling hot [Unknown]
  - Facial pain [Unknown]
  - Toothache [Unknown]
  - Gingival pain [Unknown]
  - Paraesthesia oral [Unknown]

NARRATIVE: CASE EVENT DATE: 20191217
